FAERS Safety Report 5913498-4 (Version None)
Quarter: 2008Q4

REPORT INFORMATION
  Report Type: 
  Country: None (occurrence: None)
  Receive Date: 20081007
  Receipt Date: 20080922
  Transmission Date: 20090506
  Serious: Yes (Life-Threatening, Hospitalization)
  Sender: FDA-Public Use
  Company Number: 2008BI013093

PATIENT
  Age: 50 Year
  Sex: Female
  Weight: 60 kg

DRUGS (6)
  1. TYSABRI [Suspect]
     Indication: RELAPSING-REMITTING MULTIPLE SCLEROSIS
     Dosage: 300 MG QM IV
     Route: 042
     Dates: start: 20080513, end: 20080513
  2. CORTICOID [Concomitant]
  3. IMMUNOGLOBULINS [Concomitant]
  4. VINCRISTINE [Concomitant]
  5. REBIF [Concomitant]
  6. COPAXONE [Concomitant]

REACTIONS (24)
  - ARTHRALGIA [None]
  - CEREBRAL ATROPHY [None]
  - CONDITION AGGRAVATED [None]
  - COOMBS TEST POSITIVE [None]
  - DIZZINESS [None]
  - DYSPNOEA [None]
  - EYE PAIN [None]
  - FATIGUE [None]
  - GAIT DISTURBANCE [None]
  - GENITAL ULCERATION [None]
  - HAEMOLYTIC ANAEMIA [None]
  - HYPOAESTHESIA [None]
  - MENTAL DISORDER [None]
  - MOUTH ULCERATION [None]
  - MULTIPLE SCLEROSIS [None]
  - NYSTAGMUS [None]
  - OPTIC NEURITIS [None]
  - PURPURA [None]
  - TACHYCARDIA [None]
  - THROMBOCYTOPENIA [None]
  - TINNITUS [None]
  - TREMOR [None]
  - VISION BLURRED [None]
  - VITRITIS [None]
